FAERS Safety Report 10143961 (Version 2)
Quarter: 2014Q2

REPORT INFORMATION
  Report Type: Spontaneous
  Country: US (occurrence: US)
  Receive Date: 20140430
  Receipt Date: 20140520
  Transmission Date: 20141212
  Serious: Yes (Life-Threatening, Other)
  Sender: FDA-Public Use
  Company Number: US-BAYER-2014-062942

PATIENT
  Age: 28 Year
  Sex: Female
  Weight: 58.5 kg

DRUGS (2)
  1. MIRENA [Suspect]
     Indication: CONTRACEPTION
     Dosage: 20 MCG/24HR, CONT
     Route: 015
     Dates: start: 20110916, end: 20120826
  2. MIRENA [Suspect]
     Indication: MENORRHAGIA

REACTIONS (11)
  - Uterine perforation [None]
  - Genital haemorrhage [None]
  - Device difficult to use [None]
  - Procedural pain [None]
  - Device dislocation [None]
  - Emotional distress [None]
  - Injury [None]
  - General physical health deterioration [None]
  - Anxiety [None]
  - Anhedonia [None]
  - Pain [None]
